FAERS Safety Report 24170804 (Version 1)
Quarter: 2024Q3

REPORT INFORMATION
  Report Type: Spontaneous
  Country: IS (occurrence: IS)
  Receive Date: 20240805
  Receipt Date: 20240805
  Transmission Date: 20241017
  Serious: Yes (Hospitalization)
  Sender: PFIZER
  Company Number: None

PATIENT
  Age: 67 Year
  Sex: Female

DRUGS (5)
  1. AZITHROMYCIN [Suspect]
     Active Substance: AZITHROMYCIN
     Indication: Pneumonia
     Dosage: 1500 MG, 1X/DAY (3 TABLETS PER DAY PRESCRIBED BY MISTAKE INSTEAD OF 1 TABLETS PER DAY FOR 3 DAYS)
     Route: 048
     Dates: start: 20240712, end: 20240715
  2. WELLBUTRIN [Concomitant]
     Active Substance: BUPROPION HYDROCHLORIDE
     Indication: Depression
     Dosage: 150 MG X 1
     Route: 048
     Dates: start: 202210
  3. WELLBUTRIN [Concomitant]
     Active Substance: BUPROPION HYDROCHLORIDE
     Indication: Anxiety
  4. SERTRAL [Concomitant]
     Indication: Depression
     Dosage: 1 TABLET
     Route: 048
     Dates: start: 202210
  5. SERTRAL [Concomitant]
     Indication: Anxiety

REACTIONS (3)
  - Prescribed overdose [Not Recovered/Not Resolved]
  - Accidental overdose [Not Recovered/Not Resolved]
  - Blood sodium decreased [Not Recovered/Not Resolved]

NARRATIVE: CASE EVENT DATE: 20240715
